FAERS Safety Report 9548598 (Version 2)
Quarter: 2013Q4

REPORT INFORMATION
  Report Type: Spontaneous
  Country: US (occurrence: US)
  Receive Date: 20130924
  Receipt Date: 20131025
  Transmission Date: 20140711
  Serious: No
  Sender: FDA-Public Use
  Company Number: US-009507513-1309USA007316

PATIENT
  Sex: 0

DRUGS (1)
  1. IMPLANON [Suspect]
     Route: 059

REACTIONS (2)
  - Device deployment issue [Recovered/Resolved]
  - Device difficult to use [Unknown]
